FAERS Safety Report 5023863-8 (Version None)
Quarter: 2006Q2

REPORT INFORMATION
  Report Type: 
  Country: None (occurrence: None)
  Receive Date: 20060606
  Receipt Date: 20060523
  Transmission Date: 20061013
  Serious: Yes (Other)
  Sender: FDA-Public Use
  Company Number: CHPA2006US04056

PATIENT
  Sex: Female

DRUGS (3)
  1. EXCEDRIN (MIGRAINE) [Suspect]
     Indication: HYPERTENSION
     Dosage: SEE IMAGE
     Route: 048
     Dates: start: 20060419
  2. HYDROXYPROGESTERONE CAPROATE [Suspect]
     Dosage: INJECTION NOS
  3. ANAESTHETICS (NO INGREDIENTS/SUBSTANCES) [Suspect]

REACTIONS (6)
  - ANAESTHETIC COMPLICATION [None]
  - DRUG EXPOSURE DURING PREGNANCY [None]
  - HEADACHE [None]
  - MUSCLE SPASMS [None]
  - OFF LABEL USE [None]
  - PROGESTERONE DECREASED [None]
